FAERS Safety Report 11906250 (Version 2)
Quarter: 2016Q1

REPORT INFORMATION
  Report Type: Spontaneous
  Country: US (occurrence: US)
  Receive Date: 20160111
  Receipt Date: 20160310
  Transmission Date: 20160526
  Serious: No
  Sender: FDA-Public Use
  Company Number: US-TEVA-622204USA

PATIENT
  Age: 62 Year
  Sex: Female

DRUGS (13)
  1. ASPIRIN. [Concomitant]
     Active Substance: ASPIRIN
  2. FLUOXETINE [Concomitant]
     Active Substance: FLUOXETINE HYDROCHLORIDE
  3. GABAPENTIN. [Concomitant]
     Active Substance: GABAPENTIN
  4. OMEPRAZOLE. [Concomitant]
     Active Substance: OMEPRAZOLE
  5. ALEVE [Concomitant]
     Active Substance: NAPROXEN SODIUM
  6. SIMVASTATIN. [Concomitant]
     Active Substance: SIMVASTATIN
  7. XANAX [Concomitant]
     Active Substance: ALPRAZOLAM
  8. METFORMIN [Concomitant]
     Active Substance: METFORMIN HYDROCHLORIDE
  9. MULTIVITAMIN [Concomitant]
     Active Substance: VITAMINS
  10. BIOTIN [Concomitant]
     Active Substance: BIOTIN
  11. BUPROPION. [Concomitant]
     Active Substance: BUPROPION
  12. ESTRADIOL. [Concomitant]
     Active Substance: ESTRADIOL
  13. COPAXONE [Suspect]
     Active Substance: GLATIRAMER ACETATE
     Indication: MULTIPLE SCLEROSIS
     Route: 058
     Dates: start: 201404

REACTIONS (2)
  - Depression [Recovered/Resolved]
  - Fatigue [Recovered/Resolved]

NARRATIVE: CASE EVENT DATE: 201512
